FAERS Safety Report 7493050-2 (Version None)
Quarter: 2011Q2

REPORT INFORMATION
  Report Type: 
  Country: None (occurrence: None)
  Receive Date: 20110520
  Receipt Date: 20110509
  Transmission Date: 20111010
  Serious: No
  Sender: FDA-Public Use
  Company Number: US-PFIZER INC-2011097965

PATIENT
  Sex: Female

DRUGS (5)
  1. LAMICTAL [Suspect]
     Indication: CONVULSION
     Dosage: 25 MG, 1X/DAY
     Route: 048
     Dates: start: 20110501
  2. PAXIL [Concomitant]
     Indication: ANTIDEPRESSANT THERAPY
     Dosage: 150 MG, 1X/DAY
     Route: 048
  3. XANAX [Suspect]
     Indication: DEPRESSION
     Dosage: 6 MG, 1X/DAY
     Route: 048
     Dates: start: 19860101
  4. XANAX [Suspect]
     Dosage: 5 MG, UNK
     Dates: start: 20110505
  5. XANAX [Suspect]
     Dosage: 4 MG, 1X/DAY
     Route: 048
     Dates: start: 20110501

REACTIONS (9)
  - INCORRECT DOSE ADMINISTERED [None]
  - INSOMNIA [None]
  - ANXIETY [None]
  - HEPATIC ENZYME INCREASED [None]
  - NERVOUSNESS [None]
  - DEPRESSION [None]
  - PALPITATIONS [None]
  - HYPERHIDROSIS [None]
  - CHILLS [None]
